FAERS Safety Report 7553454-6 (Version None)
Quarter: 2011Q2

REPORT INFORMATION
  Report Type: 
  Country: None (occurrence: None)
  Receive Date: 20110617
  Receipt Date: 20100526
  Transmission Date: 20111010
  Serious: Yes (Hospitalization)
  Sender: FDA-Public Use
  Company Number: US-BAYER-201017077NA

PATIENT
  Age: 22 Year
  Sex: Female
  Weight: 82.993 kg

DRUGS (14)
  1. GLYCOPYRROLATE [Concomitant]
  2. KETOROLAC TROMETHAMINE [Concomitant]
  3. LORTAB [Concomitant]
  4. ZOSYN [Concomitant]
  5. VERSED [Concomitant]
  6. ONDANSETRON [Concomitant]
  7. MEDROL [Concomitant]
     Dosage: UNK UNK, PRN
     Route: 048
  8. PROMETHAZINE [Concomitant]
  9. FLAGYL [Concomitant]
     Route: 048
  10. MEPERIDINE HCL [Concomitant]
  11. ASACOL [Concomitant]
     Route: 048
  12. YAZ [Suspect]
     Indication: ORAL CONTRACEPTION
     Dosage: UNK
     Dates: start: 20060101, end: 20090101
  13. FAMOTIDINE [Concomitant]
  14. PHENTERMINE [Concomitant]
     Indication: MEDICAL DIET
     Dosage: UNK
     Dates: start: 20080701, end: 20080801

REACTIONS (7)
  - CHOLECYSTITIS [None]
  - VOMITING [None]
  - ABDOMINAL PAIN [None]
  - NAUSEA [None]
  - BILIARY COLIC [None]
  - CHOLELITHIASIS [None]
  - VAGINAL HAEMORRHAGE [None]
